FAERS Safety Report 20432900 (Version 1)
Quarter: 2022Q1

REPORT INFORMATION
  Report Type: Spontaneous
  Country: US (occurrence: US)
  Receive Date: 20220205
  Receipt Date: 20220205
  Transmission Date: 20220423
  Serious: No
  Sender: FDA-Public Use
  Company Number: US-SA-SAC20220127000614

PATIENT
  Age: 63 Year
  Sex: Female

DRUGS (5)
  1. DUPIXENT [Suspect]
     Active Substance: DUPILUMAB
     Indication: Dermatitis atopic
     Dosage: 300 MG/2ML
     Route: 058
     Dates: start: 20200610
  2. ACYCLOVIR [Concomitant]
     Active Substance: ACYCLOVIR
  3. CLOBETASOL [Concomitant]
     Active Substance: CLOBETASOL
  4. MELOXICAM [Concomitant]
     Active Substance: MELOXICAM
  5. RECLAST [Concomitant]
     Active Substance: ZOLEDRONIC ACID
     Dosage: INJ 5/1 OOML

REACTIONS (1)
  - Dermatitis atopic [Unknown]
